FAERS Safety Report 7088924-0 (Version None)
Quarter: 2010Q4

REPORT INFORMATION
  Report Type: 
  Country: None (occurrence: None)
  Receive Date: 20101108
  Receipt Date: 20101028
  Transmission Date: 20110411
  Serious: Yes (Other)
  Sender: FDA-Public Use
  Company Number: PHHY2010BR69709

PATIENT
  Sex: Male

DRUGS (3)
  1. RASILEZ [Suspect]
     Dosage: 300 MG, UNK
  2. DIOVAN [Suspect]
     Dosage: 320 MG, UNK
  3. GALVUS MET [Suspect]
     Dosage: 50/850 MG, UNK

REACTIONS (1)
  - CHRONIC MYELOID LEUKAEMIA [None]
